FAERS Safety Report 11798448 (Version 1)
Quarter: 2015Q4

REPORT INFORMATION
  Report Type: Spontaneous
  Country: CA (occurrence: CA)
  Receive Date: 20151203
  Receipt Date: 20151203
  Transmission Date: 20160305
  Serious: Yes (Other)
  Sender: FDA-Public Use
  Company Number: CA-TEVA-613491ACC

PATIENT
  Age: 83 Year
  Sex: Male

DRUGS (4)
  1. FINASTERIDE. [Suspect]
     Active Substance: FINASTERIDE
     Indication: PROSTATIC SPECIFIC ANTIGEN INCREASED
  2. LIPITOR [Concomitant]
     Active Substance: ATORVASTATIN CALCIUM
  3. FINASTERIDE. [Suspect]
     Active Substance: FINASTERIDE
     Indication: BENIGN PROSTATIC HYPERPLASIA
     Dosage: 5 MILLIGRAM DAILY;
     Route: 048
  4. NIACIN. [Concomitant]
     Active Substance: NIACIN

REACTIONS (2)
  - Gynaecomastia [Not Recovered/Not Resolved]
  - Wound [Not Recovered/Not Resolved]
